FAERS Safety Report 10261961 (Version 10)
Quarter: 2015Q2

REPORT INFORMATION
  Report Type: Report from Study
  Country: US (occurrence: US)
  Receive Date: 20140626
  Receipt Date: 20150623
  Transmission Date: 20150821
  Serious: Yes (Hospitalization, Other)
  Sender: FDA-Public Use
  Company Number: US-ACTELION-A-US2013-92821

PATIENT
  Age: 64 Year
  Sex: Female

DRUGS (8)
  1. LETAIRIS [Concomitant]
     Active Substance: AMBRISENTAN
  2. TRACLEER [Suspect]
     Active Substance: BOSENTAN\BOSENTAN MONOHYDRATE
     Indication: PULMONARY ARTERIAL HYPERTENSION
     Dosage: UNK
     Route: 048
  3. VENTAVIS [Suspect]
     Active Substance: ILOPROST
     Dosage: 5 MCG, UNK
     Route: 055
  4. TRACLEER [Suspect]
     Active Substance: BOSENTAN\BOSENTAN MONOHYDRATE
     Dosage: UNK
     Route: 048
  5. COUMADIN [Concomitant]
     Active Substance: WARFARIN SODIUM
  6. VENTAVIS [Suspect]
     Active Substance: ILOPROST
     Indication: PULMONARY ARTERIAL HYPERTENSION
     Dosage: 5 MCG, UNK
     Route: 055
     Dates: start: 20091215
  7. TRACLEER [Suspect]
     Active Substance: BOSENTAN\BOSENTAN MONOHYDRATE
     Dosage: UNK
     Route: 048
  8. ASPIRIN. [Concomitant]
     Active Substance: ASPIRIN

REACTIONS (13)
  - Fluid retention [Unknown]
  - Pulmonary hypertension [Unknown]
  - Asthenia [Unknown]
  - Cardiac failure congestive [Unknown]
  - Dyspnoea [Unknown]
  - Hypotonia [Unknown]
  - Pain in extremity [Unknown]
  - Urinary tract infection [Recovered/Resolved]
  - Thrombosis [Unknown]
  - Clostridium difficile infection [Unknown]
  - Fluid overload [Unknown]
  - Oedema [Unknown]
  - Bedridden [Unknown]

NARRATIVE: CASE EVENT DATE: 20131217
